FAERS Safety Report 9422904 (Version 1)
Quarter: 2013Q3

REPORT INFORMATION
  Report Type: Spontaneous
  Country: FR (occurrence: None)
  Receive Date: 20130709
  Receipt Date: 20130709
  Transmission Date: 20140515
  Serious: Yes (Hospitalization)
  Sender: FDA-Public Use
  Company Number: 2013036759

PATIENT
  Age: 63 Year
  Sex: Female

DRUGS (9)
  1. PRIVIGEN (IMMUNE GLOBULIN INTRAVENOUS (HUMAN) 10% LIQUID) [Suspect]
     Dosage: (NOT OTHERWISE SPECIFIED)
     Route: 042
     Dates: start: 20130504, end: 20130505
  2. FLUOXETINE (FLUOEXTINE) [Concomitant]
  3. DIFFU K (POTASSIUM CHLORIDE) [Concomitant]
  4. ATENOL (ATENOL) [Concomitant]
  5. STILNOX (ZOLPIDEM) [Concomitant]
  6. SPIRIVA (TIOTROPIUM BROMIDE) [Concomitant]
  7. SERETIDE [Concomitant]
  8. BRONCHODUAL (DUOVENT) [Concomitant]
  9. MABTHERA [Suspect]

REACTIONS (6)
  - Palmar erythema [None]
  - Skin exfoliation [None]
  - Dyshidrotic eczema [None]
  - Eczema [None]
  - Psoriasis [None]
  - Pruritus [None]
